FAERS Safety Report 8999954 (Version 2)
Quarter: 2013Q1

REPORT INFORMATION
  Report Type: Spontaneous
  Country: US (occurrence: US)
  Receive Date: 20130102
  Receipt Date: 20130121
  Transmission Date: 20140127
  Serious: Yes (Death)
  Sender: FDA-Public Use
  Company Number: US-ASTELLAS-2012US012844

PATIENT
  Age: 84 Year
  Sex: Male

DRUGS (1)
  1. XTANDI [Suspect]
     Indication: NEOPLASM PROSTATE
     Dosage: 160 MG, UID/QD
     Route: 048
     Dates: start: 20121105, end: 20121217

REACTIONS (1)
  - Death [Fatal]
